FAERS Safety Report 10080678 (Version 1)
Quarter: 2014Q2

REPORT INFORMATION
  Report Type: Spontaneous
  Country: CH (occurrence: None)
  Receive Date: 20140414
  Receipt Date: 20140414
  Transmission Date: 20141212
  Serious: Yes (Life-Threatening, Hospitalization)
  Sender: FDA-Public Use
  Company Number: 20140195

PATIENT
  Age: 70 Year
  Sex: Male

DRUGS (1)
  1. FERINJECT [Suspect]
     Indication: IRON DEFICIENCY ANAEMIA
     Dosage: 1 GM INTRAVENOUS
     Route: 042
     Dates: start: 20131216, end: 20131216

REACTIONS (6)
  - Lip swelling [None]
  - Gastrointestinal haemorrhage [None]
  - Blood pressure decreased [None]
  - Haemoglobin decreased [None]
  - Angioedema [None]
  - Gastric ulcer haemorrhage [None]
